FAERS Safety Report 25745858 (Version 1)
Quarter: 2025Q3

REPORT INFORMATION
  Report Type: Spontaneous
  Country: EU (occurrence: EU)
  Receive Date: 20250901
  Receipt Date: 20250901
  Transmission Date: 20251020
  Serious: Yes (Hospitalization, Other)
  Sender: STRIDES
  Company Number: EU-STRIDES ARCOLAB LIMITED-2025SP010986

PATIENT
  Age: 36 Year
  Sex: Female

DRUGS (16)
  1. COLCHICINE [Suspect]
     Active Substance: COLCHICINE
     Indication: Pericarditis
     Route: 065
  2. IBUPROFEN [Suspect]
     Active Substance: IBUPROFEN
     Indication: Pericarditis
     Route: 065
  3. IBUPROFEN [Suspect]
     Active Substance: IBUPROFEN
     Route: 065
  4. HYDROCORTISONE [Suspect]
     Active Substance: HYDROCORTISONE
     Indication: Secondary adrenocortical insufficiency
     Route: 065
  5. ANAKINRA [Suspect]
     Active Substance: ANAKINRA
     Indication: Pericarditis
     Route: 058
  6. ANAKINRA [Suspect]
     Active Substance: ANAKINRA
     Route: 058
  7. ANAKINRA [Suspect]
     Active Substance: ANAKINRA
     Route: 058
  8. ANAKINRA [Suspect]
     Active Substance: ANAKINRA
     Route: 058
  9. ANAKINRA [Suspect]
     Active Substance: ANAKINRA
     Route: 058
  10. ANAKINRA [Suspect]
     Active Substance: ANAKINRA
     Route: 058
  11. ANAKINRA [Suspect]
     Active Substance: ANAKINRA
     Route: 058
  12. INDOMETHACIN [Concomitant]
     Active Substance: INDOMETHACIN
     Indication: Pericarditis
     Route: 065
  13. INDOMETHACIN [Concomitant]
     Active Substance: INDOMETHACIN
     Route: 065
  14. METHYLPREDNISOLONE [Concomitant]
     Active Substance: METHYLPREDNISOLONE
     Indication: Pericarditis
     Route: 065
  15. METHYLPREDNISOLONE [Concomitant]
     Active Substance: METHYLPREDNISOLONE
     Route: 065
  16. SARS-CoV-2 vaccine [Concomitant]
     Indication: COVID-19 immunisation
     Route: 065

REACTIONS (5)
  - Pericarditis [Recovering/Resolving]
  - Gastrointestinal disorder [Unknown]
  - Maternal exposure during pregnancy [Unknown]
  - Maternal exposure during breast feeding [Unknown]
  - Off label use [Unknown]
